FAERS Safety Report 7633735-8 (Version None)
Quarter: 2011Q3

REPORT INFORMATION
  Report Type: 
  Country: None (occurrence: None)
  Receive Date: 20110725
  Receipt Date: 20110720
  Transmission Date: 20111222
  Serious: Yes (Life-Threatening)
  Sender: FDA-Public Use
  Company Number: TW-ASTRAZENECA-2011SE43367

PATIENT

DRUGS (1)
  1. BUPIVACAINE HCL [Suspect]
     Dosage: 1.1 MG/KG

REACTIONS (1)
  - CIRCULATORY COLLAPSE [None]
